FAERS Safety Report 6021843-7 (Version None)
Quarter: 2008Q4

REPORT INFORMATION
  Report Type: 
  Country: None (occurrence: None)
  Receive Date: 20081229
  Receipt Date: 20081217
  Transmission Date: 20090506
  Serious: Yes (Other)
  Sender: FDA-Public Use
  Company Number: US-ROCHE-600604

PATIENT
  Sex: Female

DRUGS (4)
  1. PEGASYS [Suspect]
     Indication: HEPATITIS C
     Route: 058
     Dates: start: 20080312
  2. RIBAVIRIN [Suspect]
     Indication: HEPATITIS C
     Route: 048
     Dates: start: 20080312
  3. RIBAVIRIN [Suspect]
     Route: 048
  4. RIBAVIRIN [Suspect]
     Route: 048

REACTIONS (3)
  - ACUTE FEBRILE NEUTROPHILIC DERMATOSIS [None]
  - HAEMOGLOBIN ABNORMAL [None]
  - SALMONELLOSIS [None]
